FAERS Safety Report 12114493 (Version 1)
Quarter: 2016Q1

REPORT INFORMATION
  Report Type: Spontaneous
  Country: US (occurrence: None)
  Receive Date: 20160224
  Receipt Date: 20160224
  Transmission Date: 20160526
  Serious: Yes (Hospitalization)
  Sender: FDA-Public Use
  Company Number: None

PATIENT
  Age: 75 Year
  Sex: Male
  Weight: 97 kg

DRUGS (1)
  1. BEVACIZUMAB (RHUMAB VEGF) [Suspect]
     Active Substance: BEVACIZUMAB
     Dates: end: 20160113

REACTIONS (7)
  - Respiratory alkalosis [None]
  - Respiratory failure [None]
  - Hypophagia [None]
  - Confusional state [None]
  - Dyspnoea [None]
  - Lethargy [None]
  - Metabolic encephalopathy [None]

NARRATIVE: CASE EVENT DATE: 20160201
